FAERS Safety Report 17858884 (Version 1)
Quarter: 2020Q2

REPORT INFORMATION
  Report Type: Spontaneous
  Country: US (occurrence: US)
  Receive Date: 20200604
  Receipt Date: 20200604
  Transmission Date: 20200714
  Serious: Yes (Other)
  Sender: FDA-Public Use
  Company Number: US-JNJFOC-20200603118

PATIENT
  Age: 15 Year
  Sex: Male

DRUGS (3)
  1. ZYRTEC [Suspect]
     Active Substance: CETIRIZINE HYDROCHLORIDE
     Indication: SEASONAL ALLERGY
     Dosage: 10 MILLIGRAM, ONCE DAILY (QD), SINCE HE WAS 11 YEARS OLD
     Route: 065
  2. CLARITIN [Suspect]
     Active Substance: LORATADINE
     Indication: SEASONAL ALLERGY
     Dosage: 10 MILLIGRAM, ONCE DAILY (QD)
     Route: 065
  3. CLARITIN [Suspect]
     Active Substance: LORATADINE
     Indication: CHILDHOOD ASTHMA
     Route: 065

REACTIONS (1)
  - Marginal zone lymphoma [Recovered/Resolved]
